FAERS Safety Report 19064292 (Version 2)
Quarter: 2021Q2

REPORT INFORMATION
  Report Type: Report from Study
  Country: BR (occurrence: BR)
  Receive Date: 20210326
  Receipt Date: 20210510
  Transmission Date: 20210717
  Serious: Yes (Other)
  Sender: FDA-Public Use
  Company Number: NVSC2021BR060774

PATIENT
  Age: 65 Year
  Sex: Female

DRUGS (4)
  1. PIQRAY [Suspect]
     Active Substance: ALPELISIB
     Dosage: 300 MG (AFTER THE MEAL) (SUPPLIED BY HEALTH PLAN: 2 TABLETS OF 150 MG)
     Route: 048
     Dates: start: 202011, end: 20210226
  2. AFINITOR [Concomitant]
     Active Substance: EVEROLIMUS
     Indication: PRODUCT USED FOR UNKNOWN INDICATION
     Dosage: UNK, QD
     Route: 065
     Dates: start: 20210309
  3. PIQRAY [Suspect]
     Active Substance: ALPELISIB
     Indication: PRODUCT USED FOR UNKNOWN INDICATION
     Dosage: 300 MG (AFTER THE MEAL) (SUPPLIED BY THE PROGRAM 1 TABLET OF 200 MG AND 2 TABLETS OF 50 MG)
     Route: 048
     Dates: start: 202011, end: 20210226
  4. AROMASIN [Concomitant]
     Active Substance: EXEMESTANE
     Indication: PRODUCT USED FOR UNKNOWN INDICATION
     Dosage: UNK
     Route: 065

REACTIONS (14)
  - Metastases to central nervous system [Unknown]
  - Vomiting [Recovered/Resolved]
  - Weight decreased [Recovering/Resolving]
  - Nausea [Recovered/Resolved]
  - Malaise [Unknown]
  - Memory impairment [Unknown]
  - Blood glucose increased [Recovering/Resolving]
  - Weight increased [Unknown]
  - Taste disorder [Unknown]
  - Metastases to bone [Unknown]
  - Abdominal pain upper [Unknown]
  - Decreased appetite [Unknown]
  - Headache [Not Recovered/Not Resolved]
  - Treatment failure [Unknown]

NARRATIVE: CASE EVENT DATE: 202012
